FAERS Safety Report 8046380-X (Version None)
Quarter: 2012Q1

REPORT INFORMATION
  Report Type: 
  Country: None (occurrence: None)
  Receive Date: 20120113
  Receipt Date: 20120106
  Transmission Date: 20120608
  Serious: Yes (Other)
  Sender: FDA-Public Use
  Company Number: US-ASTRAZENECA-2012SE01431

PATIENT
  Age: 40 Year
  Sex: Male

DRUGS (3)
  1. FENTANYL [Concomitant]
     Indication: SEDATION
     Route: 042
  2. PROPOFOL [Suspect]
     Indication: SEDATION
     Dosage: 50-90 UG/KG/MIN
     Route: 042
  3. VERSED [Concomitant]
     Indication: SEDATION

REACTIONS (1)
  - PROPOFOL INFUSION SYNDROME [None]
